FAERS Safety Report 9772895 (Version 1)
Quarter: 2013Q4

REPORT INFORMATION
  Report Type: Spontaneous
  Country: FR (occurrence: FR)
  Receive Date: 20131219
  Receipt Date: 20131219
  Transmission Date: 20140711
  Serious: Yes (Death, Hospitalization)
  Sender: FDA-Public Use
  Company Number: FR-ELI_LILLY_AND_COMPANY-FR201312003968

PATIENT
  Age: 42 Year
  Sex: Male

DRUGS (2)
  1. ALIMTA [Suspect]
     Indication: METASTASES TO LIVER
     Dosage: 885 MG, UNK
     Route: 042
     Dates: start: 20130930, end: 20130930
  2. CARBOPLATINE [Suspect]
     Indication: HEPATIC CANCER METASTATIC
     Dosage: 400 MG, UNK
     Route: 042
     Dates: start: 20130930, end: 20130930

REACTIONS (3)
  - Pancytopenia [Fatal]
  - Septic shock [Fatal]
  - Multi-organ failure [Unknown]
